FAERS Safety Report 5400745-0 (Version None)
Quarter: 2007Q3

REPORT INFORMATION
  Report Type: 
  Country: None (occurrence: None)
  Receive Date: 20070730
  Receipt Date: 20070718
  Transmission Date: 20080115
  Serious: Yes (Hospitalization)
  Sender: FDA-Public Use
  Company Number: JP-ASTRAZENECA-2007AP03665

PATIENT
  Age: 82 Year
  Sex: Male

DRUGS (2)
  1. ZOLADEX [Suspect]
     Indication: PROSTATE CANCER
     Route: 058
     Dates: start: 20000101
  2. ZOLADEX [Suspect]
     Route: 058
     Dates: start: 20020607, end: 20070309

REACTIONS (2)
  - DRUG PRESCRIBING ERROR [None]
  - INJECTION SITE HAEMORRHAGE [None]
